FAERS Safety Report 25365714 (Version 2)
Quarter: 2025Q3

REPORT INFORMATION
  Report Type: Report from Study
  Country: AE (occurrence: AE)
  Receive Date: 20250527
  Receipt Date: 20250803
  Transmission Date: 20251020
  Serious: Yes (Other)
  Sender: ALEXION PHARMACEUTICALS
  Company Number: AE-AstraZeneca-CH-00874533A

PATIENT
  Sex: Female

DRUGS (2)
  1. FULVESTRANT [Suspect]
     Active Substance: FULVESTRANT
     Indication: Breast cancer
     Dosage: 500 MILLIGRAM, Q4W
     Dates: start: 202207, end: 202502
  2. FULVESTRANT [Suspect]
     Active Substance: FULVESTRANT

REACTIONS (5)
  - Neck mass [Unknown]
  - Vertebral column mass [Unknown]
  - Carbohydrate antigen 15-3 increased [Unknown]
  - Insomnia [Unknown]
  - Decreased activity [Unknown]

NARRATIVE: CASE EVENT DATE: 20250501
